FAERS Safety Report 19102981 (Version 2)
Quarter: 2021Q2

REPORT INFORMATION
  Report Type: Report from Study
  Country: US (occurrence: US)
  Receive Date: 20210407
  Receipt Date: 20210426
  Transmission Date: 20210717
  Serious: Yes (Death, Hospitalization)
  Sender: FDA-Public Use
  Company Number: US-GLAXOSMITHKLINE-US2021GSK071108

PATIENT
  Age: 32 Year
  Sex: Female
  Weight: 80.9 kg

DRUGS (14)
  1. OXYCODONE HYDROCHLORIDE. [Concomitant]
     Active Substance: OXYCODONE HYDROCHLORIDE
     Dosage: 10 MG, PRN
     Route: 048
  2. ONDANSETRON [Concomitant]
     Active Substance: ONDANSETRON
     Dosage: 8 MG, PRN
     Route: 048
  3. NARCAN [Concomitant]
     Active Substance: NALOXONE HYDROCHLORIDE
     Dosage: 4 MG, PRN
     Route: 055
  4. TRAZODONE HYDROCHLORIDE. [Concomitant]
     Active Substance: TRAZODONE HYDROCHLORIDE
     Dosage: 50 MEQ, QD
     Route: 048
  5. DOSTARLIMAB [Suspect]
     Active Substance: DOSTARLIMAB
     Indication: CERVIX CARCINOMA
     Dosage: 500 MG, Z?Q3WK
     Route: 042
     Dates: start: 20210305, end: 20210305
  6. POTASSIUM CHLORIDE. [Concomitant]
     Active Substance: POTASSIUM CHLORIDE
     Dosage: 20 MEQ, QD
     Route: 048
  7. OLANZAPINE. [Concomitant]
     Active Substance: OLANZAPINE
     Dosage: 5 MG, Z (QHS)
     Route: 048
  8. NIRAPARIB [Suspect]
     Active Substance: NIRAPARIB
     Dosage: 200 MG, QD
     Route: 048
     Dates: start: 20210327
  9. ESCITALOPRAM OXALATE. [Concomitant]
     Active Substance: ESCITALOPRAM OXALATE
     Dosage: 20 MG, QD
     Route: 048
  10. LORAZEPAM. [Concomitant]
     Active Substance: LORAZEPAM
     Dosage: 1 MG, QD
     Route: 048
  11. BACTRIM [Concomitant]
     Active Substance: SULFAMETHOXAZOLE\TRIMETHOPRIM
     Dosage: 800 TO 160 MG, QD
     Route: 048
  12. NIRAPARIB [Suspect]
     Active Substance: NIRAPARIB
     Indication: CERVIX CARCINOMA
     Dosage: 200 MG, QD
     Route: 048
     Dates: start: 20210305
  13. PROCHLORPERAZINE MALEATE. [Concomitant]
     Active Substance: PROCHLORPERAZINE MALEATE
     Dosage: 10 MG, PRN
     Route: 048
  14. MORPHINE SULFATE EXTENDED RELEASE [Concomitant]
     Active Substance: MORPHINE SULFATE
     Dosage: 30 MG, QD
     Route: 048

REACTIONS (2)
  - Sudden death [Fatal]
  - Encephalopathy [Unknown]

NARRATIVE: CASE EVENT DATE: 20210322
